FAERS Safety Report 6535524-4 (Version None)
Quarter: 2010Q1

REPORT INFORMATION
  Report Type: 
  Country: None (occurrence: None)
  Receive Date: 20100113
  Receipt Date: 20100108
  Transmission Date: 20100710
  Serious: Yes (Other)
  Sender: FDA-Public Use
  Company Number: US-BRISTOL-MYERS SQUIBB COMPANY-14929137

PATIENT
  Age: 40 Year
  Sex: Male

DRUGS (2)
  1. REYATAZ [Suspect]
  2. TRUVADA [Suspect]

REACTIONS (1)
  - RENAL FAILURE [None]
